FAERS Safety Report 21975962 (Version 1)
Quarter: 2023Q1

REPORT INFORMATION
  Report Type: Spontaneous
  Country: RO (occurrence: RO)
  Receive Date: 20230210
  Receipt Date: 20230210
  Transmission Date: 20230417
  Serious: Yes (Other)
  Sender: FDA-Public Use
  Company Number: RO-SUN PHARMACEUTICAL INDUSTRIES LTD-2023RR-377857

PATIENT
  Age: 16 Year

DRUGS (8)
  1. TRIHEXYPHENIDYL [Suspect]
     Active Substance: TRIHEXYPHENIDYL
     Indication: Mental disorder
     Dosage: 15 DOSAGE FORM (TABLETS) IN 3 DAYS
     Route: 065
  2. ALPRAZOLAM [Suspect]
     Active Substance: ALPRAZOLAM
     Indication: Depression
     Dosage: UNK
     Route: 065
  3. BROMAZEPAM [Suspect]
     Active Substance: BROMAZEPAM
     Indication: Depression
     Dosage: UNK
     Route: 065
  4. LORAZEPAM [Suspect]
     Active Substance: LORAZEPAM
     Indication: Depression
     Dosage: UNK
     Route: 065
  5. XANAX [Suspect]
     Active Substance: ALPRAZOLAM
     Indication: Depression
     Dosage: UNK
     Route: 065
  6. RISPERIDONE [Suspect]
     Active Substance: RISPERIDONE
     Indication: Depression
     Dosage: UNK
     Route: 065
  7. SULBUTIAMINE [Suspect]
     Active Substance: SULBUTIAMINE
     Indication: Depression
     Dosage: UNK
     Route: 065
  8. FEVARIN [Suspect]
     Active Substance: FLUVOXAMINE MALEATE
     Indication: Depression
     Dosage: UNK
     Route: 065

REACTIONS (2)
  - Drug ineffective [Unknown]
  - Refusal of treatment by patient [Unknown]
